FAERS Safety Report 21875214 (Version 1)
Quarter: 2023Q1

REPORT INFORMATION
  Report Type: Report from Study
  Country: AT (occurrence: AT)
  Receive Date: 20230117
  Receipt Date: 20230117
  Transmission Date: 20230418
  Serious: Yes (Hospitalization)
  Sender: FDA-Public Use
  Company Number: AT-CELLTRION INC.-2022AT015193

PATIENT

DRUGS (3)
  1. RITUXIMAB [Suspect]
     Active Substance: RITUXIMAB
     Indication: Follicular lymphoma
     Dosage: 711.57 MILLIGRAM, EVERY 1 WEEK (THE LAST DOSE PRIOR TO THE SERIOUS ADVERSE EVENT :20/JUN/2022)
     Route: 042
     Dates: start: 20220620
  2. LENALIDOMIDE [Suspect]
     Active Substance: LENALIDOMIDE
     Indication: Follicular lymphoma
     Dosage: 20 MILLIGRAM, QD (THE LAST DOSE PRIOR TO THE SERIOUS ADVERSE EVENT :25/JUN/2022)
     Route: 048
     Dates: start: 20220620
  3. LENALIDOMIDE [Suspect]
     Active Substance: LENALIDOMIDE
     Dosage: UNK (THE LAST DOSE PRIOR TO THE SERIOUS ADVERSE EVENT)
     Dates: start: 20220625

REACTIONS (2)
  - Pyrexia [Recovered/Resolved]
  - Off label use [Unknown]

NARRATIVE: CASE EVENT DATE: 20220625
